FAERS Safety Report 4595534-3 (Version None)
Quarter: 2005Q1

REPORT INFORMATION
  Report Type: 
  Country: None (occurrence: None)
  Receive Date: 20050228
  Receipt Date: 20050228
  Transmission Date: 20050727
  Serious: No
  Sender: FDA-Public Use
  Company Number: None

PATIENT
  Sex: Female

DRUGS (1)
  1. ANTIVERT [Suspect]
     Indication: VERTIGO
     Dosage: 12.5 , THREE  TID

REACTIONS (2)
  - GASTROINTESTINAL DISORDER [None]
  - PHARMACEUTICAL PRODUCT COMPLAINT [None]
